FAERS Safety Report 11272066 (Version 1)
Quarter: 2015Q3

REPORT INFORMATION
  Report Type: Spontaneous
  Country: US (occurrence: None)
  Receive Date: 20150713
  Receipt Date: 20150713
  Transmission Date: 20151125
  Serious: No
  Sender: FDA-Public Use
  Company Number: None

PATIENT
  Age: 58 Year
  Sex: Female

DRUGS (15)
  1. LEVOTHYROXINE (LEVOTHROID/SYNTHROID) [Concomitant]
  2. ERGOCALCIFEROL. [Concomitant]
     Active Substance: ERGOCALCIFEROL
  3. ALBUTEROL (PROAIR HFA/PROVENTIL HFA) [Concomitant]
  4. VESICARE [Concomitant]
     Active Substance: SOLIFENACIN SUCCINATE
  5. TOLTERODINE (DETROL) [Concomitant]
  6. VIT D2 (VITAMIN D2) [Concomitant]
  7. LIORESAL [Concomitant]
     Active Substance: BACLOFEN
  8. IMLQULM [Concomitant]
  9. OMEPRAZOLE (PRILOSEC) SR [Concomitant]
  10. LORAZEPAM (ATIVAN) [Concomitant]
  11. TECFIDERA SR [Concomitant]
  12. AMPYRA [Suspect]
     Active Substance: DALFAMPRIDINE
     Indication: MULTIPLE SCLEROSIS
     Route: 048
     Dates: start: 201005
  13. DEXTROAMPHETAMINE-AMPHETAMINE (AMPHETAMINE SALT COMBO) [Concomitant]
  14. MOTRIN [Concomitant]
     Active Substance: IBUPROFEN
  15. LIPITOR [Concomitant]
     Active Substance: ATORVASTATIN CALCIUM

REACTIONS (1)
  - Squamous cell carcinoma of skin [None]

NARRATIVE: CASE EVENT DATE: 20150612
